APPROVED DRUG PRODUCT: EVEKEO
Active Ingredient: AMPHETAMINE SULFATE
Strength: 5MG
Dosage Form/Route: TABLET;ORAL
Application: A200166 | Product #001 | TE Code: AA
Applicant: AZURITY PHARMACEUTICALS INC
Approved: Aug 9, 2012 | RLD: No | RS: No | Type: RX